FAERS Safety Report 5060197-X (Version None)
Quarter: 2006Q3

REPORT INFORMATION
  Report Type: 
  Country: None (occurrence: None)
  Receive Date: 20060718
  Receipt Date: 20060706
  Transmission Date: 20061208
  Serious: Yes (Other)
  Sender: FDA-Public Use
  Company Number: FR200607000799

PATIENT
  Age: 64 Year
  Sex: Female

DRUGS (1)
  1. RALOXIFENE HCL [Suspect]
     Dosage: ORAL
     Route: 048
     Dates: end: 20060501

REACTIONS (2)
  - OPTIC ISCHAEMIC NEUROPATHY [None]
  - RETINAL ARTERY THROMBOSIS [None]
